FAERS Safety Report 22122450 (Version 5)
Quarter: 2023Q2

REPORT INFORMATION
  Report Type: Report from Study
  Country: IT (occurrence: None)
  Receive Date: 20230321
  Receipt Date: 20230614
  Transmission Date: 20230722
  Serious: Yes (Death, Hospitalization)
  Sender: FDA-Public Use
  Company Number: IT-ROCHE-3311421

PATIENT
  Age: 61 Year
  Sex: Female
  Weight: 56 kg

DRUGS (9)
  1. ATEZOLIZUMAB [Suspect]
     Active Substance: ATEZOLIZUMAB
     Indication: Adenocarcinoma of colon
     Dosage: ON 15/FEB/2023, RECEIVED MOST RECENT DOSE OF ATEZOLIZUMAB (IV) PRIOR TO SERIOUS ADVERSE EVENT (SAE)
     Route: 041
     Dates: start: 20230125, end: 20230308
  2. ZANZALINTINIB [Suspect]
     Active Substance: ZANZALINTINIB
     Indication: Adenocarcinoma of colon
     Dosage: ON 02/MAR/2023, RECEIVED MOST RECENT DOSE 100 MG OF XL092 ORAL PRIOR TO SERIOUS ADVERSE EVENT (SAE)
     Route: 048
     Dates: start: 20230125
  3. FENTANYL [Concomitant]
     Active Substance: FENTANYL
  4. HYDROCHLOROTHIAZIDE\OLMESARTAN MEDOXOMIL [Concomitant]
     Active Substance: HYDROCHLOROTHIAZIDE\OLMESARTAN MEDOXOMIL
  5. LANSOPRAZOLE [Concomitant]
     Active Substance: LANSOPRAZOLE
  6. KETOROLAC [Concomitant]
     Active Substance: KETOROLAC TROMETHAMINE
  7. POTASSIUM CHLORIDE [Concomitant]
     Active Substance: POTASSIUM CHLORIDE
  8. GRANISETRON [Concomitant]
     Active Substance: GRANISETRON
  9. METOCLOPRAMIDE [Concomitant]
     Active Substance: METOCLOPRAMIDE

REACTIONS (4)
  - Lipase increased [Not Recovered/Not Resolved]
  - Amylase increased [Not Recovered/Not Resolved]
  - Pancreatitis [Not Recovered/Not Resolved]
  - Malignant neoplasm progression [Fatal]

NARRATIVE: CASE EVENT DATE: 20230308
